FAERS Safety Report 4531097-6 (Version None)
Quarter: 2004Q4

REPORT INFORMATION
  Report Type: 
  Country: None (occurrence: None)
  Receive Date: 20041124
  Receipt Date: 20041108
  Transmission Date: 20050328
  Serious: Yes (Hospitalization)
  Sender: FDA-Public Use
  Company Number: 2004UW22998

PATIENT
  Age: 51 Year
  Sex: Male
  Weight: 123.83 kg

DRUGS (14)
  1. CRESTOR [Suspect]
     Indication: HYPERCHOLESTEROLAEMIA
     Dosage: 10 MG PO
     Route: 048
     Dates: end: 20041001
  2. NEXIUM [Concomitant]
  3. ACTOS [Concomitant]
  4. METFORMIN HCL [Concomitant]
  5. SINGULAIR [Concomitant]
  6. FLOMAX [Concomitant]
  7. ZETIA [Concomitant]
  8. SYNTHROID [Concomitant]
  9. MIRAPEX [Concomitant]
  10. LANTUS [Concomitant]
  11. HUMALOG [Concomitant]
  12. ADVAIR DISKUS 100/50 [Concomitant]
  13. ALBUTEROL [Concomitant]
  14. DUONEB [Concomitant]

REACTIONS (3)
  - BLOOD CREATINE PHOSPHOKINASE INCREASED [None]
  - DIZZINESS [None]
  - MYALGIA [None]
